FAERS Safety Report 7183173-X (Version None)
Quarter: 2010Q4

REPORT INFORMATION
  Report Type: 
  Country: None (occurrence: None)
  Receive Date: 20101222
  Receipt Date: 20101209
  Transmission Date: 20110411
  Serious: Yes (Hospitalization)
  Sender: FDA-Public Use
  Company Number: BE-CELGENEUS-013-21880-10121124

PATIENT
  Sex: Female

DRUGS (4)
  1. REVLIMID [Suspect]
     Indication: DIFFUSE LARGE B-CELL LYMPHOMA
     Route: 048
     Dates: start: 20100628
  2. REVLIMID [Suspect]
     Route: 048
     Dates: start: 20101115
  3. TENORMIN [Suspect]
     Route: 065
  4. ASPIRIN [Concomitant]
     Indication: PAIN
     Route: 065
     Dates: start: 20100628

REACTIONS (1)
  - ATRIOVENTRICULAR BLOCK [None]
